FAERS Safety Report 8377984-2 (Version None)
Quarter: 2012Q2

REPORT INFORMATION
  Report Type: 
  Country: None (occurrence: None)
  Receive Date: 20120522
  Receipt Date: 20120509
  Transmission Date: 20120825
  Serious: Yes (Other)
  Sender: FDA-Public Use
  Company Number: FR-MYLANLABS-2012S1009424

PATIENT
  Age: 64 Year
  Sex: Female

DRUGS (1)
  1. ONDANSETRON [Suspect]
     Indication: PRODUCT USED FOR UNKNOWN INDICATION
     Route: 042
     Dates: start: 20120420, end: 20120420

REACTIONS (3)
  - HEADACHE [None]
  - CHEST PAIN [None]
  - BLOOD PRESSURE INCREASED [None]
